FAERS Safety Report 7474313-3 (Version None)
Quarter: 2011Q2

REPORT INFORMATION
  Report Type: 
  Country: None (occurrence: None)
  Receive Date: 20110511
  Receipt Date: 20110503
  Transmission Date: 20111010
  Serious: Yes (Other)
  Sender: FDA-Public Use
  Company Number: US-AMGEN-USASP2011022951

PATIENT
  Sex: Female

DRUGS (4)
  1. XGEVA [Suspect]
     Indication: METASTASES TO BONE
     Dosage: 120 MG, Q4WK
     Dates: start: 20110215
  2. TAMOXIFEN [Concomitant]
  3. NEURONTIN [Concomitant]
  4. ARIMIDEX [Concomitant]

REACTIONS (1)
  - METASTATIC PAIN [None]
